FAERS Safety Report 18156780 (Version 1)
Quarter: 2020Q3

REPORT INFORMATION
  Report Type: Spontaneous
  Country: US (occurrence: US)
  Receive Date: 20200817
  Receipt Date: 20200817
  Transmission Date: 20201103
  Serious: No
  Sender: FDA-Public Use
  Company Number: None

PATIENT
  Sex: Female
  Weight: 64.8 kg

DRUGS (16)
  1. POTASSIUM [Concomitant]
     Active Substance: POTASSIUM
  2. VITAMIN B COMPLEX [Concomitant]
     Active Substance: CYANOCOBALAMIN\DEXPANTHENOL\NIACINAMIDE\PYRIDOXINE HYDROCHLORIDE\RIBOFLAVIN 5^-PHOSPHATE SODIUM\THIAMINE HYDROCHLORIDE\VITAMIN B COMPLEX
  3. GLUCOASMAINE CHRONDROINTIN [Concomitant]
  4. MAGNESIUM [Concomitant]
     Active Substance: MAGNESIUM
  5. MYRBETRIQ [Suspect]
     Active Substance: MIRABEGRON
     Indication: BLADDER DISORDER
  6. COENZYME Q10 [Concomitant]
     Active Substance: DIETARY SUPPLEMENT\UBIDECARENONE
  7. BABY ASPIRIN [Concomitant]
     Active Substance: ASPIRIN
  8. CRANBERRY. [Concomitant]
     Active Substance: CRANBERRY
  9. TYLENOL [Concomitant]
     Active Substance: ACETAMINOPHEN
  10. BACLOFEN. [Concomitant]
     Active Substance: BACLOFEN
  11. METOPROLOL. [Concomitant]
     Active Substance: METOPROLOL
  12. ALPRAZOLAM. [Concomitant]
     Active Substance: ALPRAZOLAM
  13. ATORVASTATIN [Concomitant]
     Active Substance: ATORVASTATIN
  14. LISINOPRIL. [Concomitant]
     Active Substance: LISINOPRIL
  15. FISH OIL [Concomitant]
     Active Substance: FISH OIL
  16. CALCIUM CITRATE [Concomitant]
     Active Substance: CALCIUM CITRATE

REACTIONS (2)
  - Periorbital swelling [None]
  - Eye swelling [None]
